FAERS Safety Report 9005516 (Version 5)
Quarter: 2013Q2

REPORT INFORMATION
  Report Type: Spontaneous
  Country: US (occurrence: US)
  Receive Date: 20130109
  Receipt Date: 20130520
  Transmission Date: 20140414
  Serious: Yes (Hospitalization, Other)
  Sender: FDA-Public Use
  Company Number: US-009507513-1301USA002438

PATIENT
  Sex: Female
  Weight: 81.63 kg

DRUGS (7)
  1. NUVARING [Suspect]
     Indication: CONTRACEPTION
     Dosage: UNK
     Route: 067
     Dates: start: 2003
  2. NUVARING [Suspect]
     Dosage: UNK
     Dates: start: 2004, end: 200407
  3. NUVARING [Suspect]
     Dosage: UNK
     Dates: start: 20050125
  4. NUVARING [Suspect]
     Dosage: UNK
     Dates: start: 20070225, end: 200802
  5. NUVARING [Suspect]
     Dosage: UNK
     Dates: start: 20080618, end: 200810
  6. NUVARING [Suspect]
     Dosage: UNK
     Dates: start: 20090222, end: 200911
  7. NUVARING [Suspect]
     Dosage: UNK
     Route: 067
     Dates: start: 201001, end: 201101

REACTIONS (13)
  - Pancreatitis [Unknown]
  - Leukocytosis [Unknown]
  - Pulmonary embolism [Recovered/Resolved]
  - Deep vein thrombosis [Recovered/Resolved]
  - Hepatic steatosis [Unknown]
  - Upper-airway cough syndrome [Unknown]
  - Type 1 diabetes mellitus [Not Recovered/Not Resolved]
  - Dyslipidaemia [Unknown]
  - Hypertriglyceridaemia [Unknown]
  - Hypertension [Unknown]
  - Depression [Unknown]
  - Renal cyst [Unknown]
  - Thrombophlebitis superficial [Unknown]
